FAERS Safety Report 10769391 (Version 2)
Quarter: 2015Q1

REPORT INFORMATION
  Report Type: Spontaneous
  Country: GR (occurrence: GR)
  Receive Date: 20150206
  Receipt Date: 20150213
  Transmission Date: 20150721
  Serious: Yes (Other)
  Sender: FDA-Public Use
  Company Number: GR-009507513-1502GRC000169

PATIENT
  Age: 38 Year
  Sex: Male

DRUGS (6)
  1. BRIDION [Suspect]
     Active Substance: SUGAMMADEX
     Indication: NEUROMUSCULAR BLOCKADE REVERSAL
     Dosage: 500 MG, UNK
  2. ESMERON [Interacting]
     Active Substance: ROCURONIUM BROMIDE
     Dosage: 20 MG, UNK
  3. BRIDION [Interacting]
     Active Substance: SUGAMMADEX
     Dosage: 500 MG, UNK
  4. ESMERON [Interacting]
     Active Substance: ROCURONIUM BROMIDE
     Indication: GENERAL ANAESTHESIA
     Dosage: 75 MG, UNK
  5. BRIDION [Interacting]
     Active Substance: SUGAMMADEX
     Dosage: 600 MG, UNK
  6. ESMERON [Interacting]
     Active Substance: ROCURONIUM BROMIDE
     Dosage: 130 MG, UNK

REACTIONS (2)
  - Drug interaction [Unknown]
  - Post procedural haemorrhage [Unknown]
